FAERS Safety Report 20809808 (Version 1)
Quarter: 2022Q2

REPORT INFORMATION
  Report Type: Spontaneous
  Country: US (occurrence: None)
  Receive Date: 20220510
  Receipt Date: 20220510
  Transmission Date: 20220721
  Serious: No
  Sender: FDA-Public Use
  Company Number: None

PATIENT
  Age: 50 Year
  Sex: Female
  Weight: 60.75 kg

DRUGS (1)
  1. UNITHROID [Suspect]
     Active Substance: LEVOTHYROXINE SODIUM
     Indication: Hypothyroidism
     Dosage: OTHER QUANTITY : 1 CAPSULE(S);?FREQUENCY : DAILY;?
     Route: 048
     Dates: start: 20220215, end: 20220507

REACTIONS (5)
  - Suspected product quality issue [None]
  - Fatigue [None]
  - Feeling abnormal [None]
  - Alopecia [None]
  - Blood thyroid stimulating hormone increased [None]
